FAERS Safety Report 4897669-4 (Version None)
Quarter: 2006Q1

REPORT INFORMATION
  Report Type: 
  Country: None (occurrence: None)
  Receive Date: 20060130
  Receipt Date: 20060117
  Transmission Date: 20060701
  Serious: Yes (Other)
  Sender: FDA-Public Use
  Company Number: 2005156812

PATIENT
  Age: 92 Year
  Sex: Female
  Weight: 52.1637 kg

DRUGS (7)
  1. GABAPENTIN [Suspect]
     Indication: NEURALGIA
     Dosage: 300 MG (100 MG, 3 IN 1 D), UNKNOWN
     Route: 065
     Dates: start: 20050822, end: 20051021
  2. LOTENSIN [Concomitant]
  3. FOLIC ACID [Concomitant]
  4. PLAVIX [Concomitant]
  5. ASPIRIN [Concomitant]
  6. ZOCOR [Concomitant]
  7. CARIZEM (DILTIAZEM HYDROCHLORIDE) [Concomitant]

REACTIONS (9)
  - BALANCE DISORDER [None]
  - CEREBROVASCULAR ACCIDENT [None]
  - DRUG INEFFECTIVE [None]
  - DYSARTHRIA [None]
  - HYPERSENSITIVITY [None]
  - NEURALGIA [None]
  - OEDEMA PERIPHERAL [None]
  - TRANSIENT ISCHAEMIC ATTACK [None]
  - VISION BLURRED [None]
